FAERS Safety Report 23755747 (Version 1)
Quarter: 2024Q2

REPORT INFORMATION
  Report Type: Spontaneous
  Country: US (occurrence: US)
  Receive Date: 20240418
  Receipt Date: 20240418
  Transmission Date: 20240716
  Serious: Yes (Death)
  Sender: FDA-Public Use
  Company Number: US-MYLANLABS-2024M1033931

PATIENT
  Age: 5 Decade
  Sex: Female

DRUGS (13)
  1. EVEROLIMUS [Suspect]
     Active Substance: EVEROLIMUS
     Indication: Medullary thyroid cancer
     Dosage: UNK
     Route: 065
  2. EVEROLIMUS [Suspect]
     Active Substance: EVEROLIMUS
     Indication: Thyroid cancer metastatic
  3. CABOZANTINIB [Suspect]
     Active Substance: CABOZANTINIB
     Indication: Medullary thyroid cancer
     Dosage: UNK
     Route: 065
  4. CABOZANTINIB [Suspect]
     Active Substance: CABOZANTINIB
     Indication: Thyroid cancer metastatic
  5. LAROTRECTINIB [Concomitant]
     Active Substance: LAROTRECTINIB
     Indication: Medullary thyroid cancer
     Dosage: INITIAL DOSE NOT STATED
     Route: 065
  6. LAROTRECTINIB [Concomitant]
     Active Substance: LAROTRECTINIB
     Indication: Thyroid cancer metastatic
     Dosage: 50 MILLIGRAM, BID
     Route: 048
  7. LAROTRECTINIB [Concomitant]
     Active Substance: LAROTRECTINIB
     Dosage: 100 MILLIGRAM, BID
     Route: 048
  8. ENTRECTINIB [Concomitant]
     Active Substance: ENTRECTINIB
     Indication: Medullary thyroid cancer
     Dosage: 200 MILLIGRAM, QD
     Route: 065
  9. ENTRECTINIB [Concomitant]
     Active Substance: ENTRECTINIB
     Indication: Thyroid cancer metastatic
     Dosage: 400 MILLIGRAM, QD
     Route: 065
  10. SELPERCATINIB [Concomitant]
     Active Substance: SELPERCATINIB
     Indication: Medullary thyroid cancer
     Dosage: 160 MILLIGRAM, BID
     Route: 065
  11. SELPERCATINIB [Concomitant]
     Active Substance: SELPERCATINIB
     Indication: Thyroid cancer metastatic
     Dosage: 80 MILLIGRAM, BID
     Route: 065
  12. SELPERCATINIB [Concomitant]
     Active Substance: SELPERCATINIB
     Dosage: 160 MILLIGRAM, BID
     Route: 065
  13. SELPERCATINIB [Concomitant]
     Active Substance: SELPERCATINIB
     Dosage: UNK
     Route: 065

REACTIONS (1)
  - Drug ineffective [Fatal]
